FAERS Safety Report 14658515 (Version 5)
Quarter: 2018Q2

REPORT INFORMATION
  Report Type: Spontaneous
  Country: US (occurrence: US)
  Receive Date: 20180320
  Receipt Date: 20180424
  Transmission Date: 20180711
  Serious: No
  Sender: FDA-Public Use
  Company Number: US-PFIZER INC-2018114478

PATIENT
  Age: 46 Year
  Sex: Female

DRUGS (3)
  1. PREDNISONE. [Concomitant]
     Active Substance: PREDNISONE
     Dosage: 10 MG, DAILY
     Route: 048
     Dates: start: 20180215
  2. ENBREL [Concomitant]
     Active Substance: ETANERCEPT
     Dosage: 1 ML, WEEKLY
     Route: 058
     Dates: start: 20180222
  3. METHOTREXATE SODIUM. [Suspect]
     Active Substance: METHOTREXATE SODIUM
     Indication: RHEUMATOID ARTHRITIS
     Dosage: UNK

REACTIONS (4)
  - Iron deficiency anaemia [Unknown]
  - Cough [Unknown]
  - Menorrhagia [Unknown]
  - Fatigue [Unknown]
